FAERS Safety Report 8248374-8 (Version None)
Quarter: 2012Q1

REPORT INFORMATION
  Report Type: 
  Country: None (occurrence: None)
  Receive Date: 20120330
  Receipt Date: 20120315
  Transmission Date: 20120608
  Serious: Yes (Hospitalization, Disabling)
  Sender: FDA-Public Use
  Company Number: US-ARROW GEN-2012-05007

PATIENT
  Age: 56 Year
  Sex: Female

DRUGS (3)
  1. METHADONE HCL [Suspect]
     Indication: INTENTIONAL OVERDOSE
     Dosage: UNK
     Route: 065
  2. FENTANYL CITRATE [Suspect]
     Indication: INTENTIONAL OVERDOSE
     Dosage: UNK
     Route: 065
  3. BENZODIAZEPINE RELATED DRUGS [Suspect]
     Indication: INTENTIONAL OVERDOSE
     Dosage: UNK
     Route: 065

REACTIONS (3)
  - RHABDOMYOLYSIS [None]
  - HYPOXIC-ISCHAEMIC ENCEPHALOPATHY [None]
  - RENAL FAILURE ACUTE [None]
